FAERS Safety Report 16806717 (Version 3)
Quarter: 2019Q3

REPORT INFORMATION
  Report Type: Spontaneous
  Country: US (occurrence: US)
  Receive Date: 20190913
  Receipt Date: 20190923
  Transmission Date: 20191005
  Serious: Yes (Other)
  Sender: FDA-Public Use
  Company Number: US-PFIZER INC-2019317394

PATIENT
  Age: 70 Year
  Sex: Female
  Weight: 68.27 kg

DRUGS (1)
  1. LATANOPROST. [Suspect]
     Active Substance: LATANOPROST
     Indication: GLAUCOMA
     Dosage: 0.005% 125MCG EYE DROPS 1 DROP EACH EYE AT NIGHTTIME
     Route: 047

REACTIONS (6)
  - Poor quality product administered [Unknown]
  - Glaucoma [Unknown]
  - Product dose omission [Unknown]
  - Product storage error [Unknown]
  - Visual impairment [Not Recovered/Not Resolved]
  - Photopsia [Unknown]

NARRATIVE: CASE EVENT DATE: 2019
